FAERS Safety Report 15452406 (Version 1)
Quarter: 2018Q4

REPORT INFORMATION
  Report Type: Spontaneous
  Country: US (occurrence: US)
  Receive Date: 20181001
  Receipt Date: 20181001
  Transmission Date: 20190204
  Serious: Yes (Other)
  Sender: FDA-Public Use
  Company Number: US-PFIZER INC-2018389897

PATIENT

DRUGS (1)
  1. LYRICA [Suspect]
     Active Substance: PREGABALIN
     Dosage: 50 MG, THREE TIMES A DAY SOMETIMES 4

REACTIONS (8)
  - Pain [Unknown]
  - Liver function test abnormal [Unknown]
  - Liver disorder [Unknown]
  - Tongue coated [Unknown]
  - Hypoaesthesia [Unknown]
  - Neuropathy peripheral [Unknown]
  - Hepatic enzyme abnormal [Unknown]
  - Intentional product misuse [Unknown]
